FAERS Safety Report 23692617 (Version 1)
Quarter: 2024Q1

REPORT INFORMATION
  Report Type: Spontaneous
  Country: US (occurrence: None)
  Receive Date: 20240330
  Receipt Date: 20240330
  Transmission Date: 20240410
  Serious: Yes (Other)
  Sender: FDA-Public Use
  Company Number: None

PATIENT
  Age: 44 Year
  Sex: Female
  Weight: 105.75 kg

DRUGS (2)
  1. EMGALITY [Suspect]
     Active Substance: GALCANEZUMAB-GNLM
     Indication: Migraine
     Dosage: OTHER QUANTITY : 2 INJECTION(S)?OTHER FREQUENCY : EVERY 28 DAYS?OTHER ROUTE : SUB Q INJECTION?
     Route: 050
     Dates: start: 20240328
  2. VITAMINS [Concomitant]
     Active Substance: VITAMINS

REACTIONS (11)
  - Drug ineffective [None]
  - Tinnitus [None]
  - Depression [None]
  - Inappropriate affect [None]
  - Depressed mood [None]
  - Anxiety [None]
  - Panic reaction [None]
  - Blood pressure increased [None]
  - Heart rate increased [None]
  - Anxiety [None]
  - Pruritus [None]

NARRATIVE: CASE EVENT DATE: 20240330
